FAERS Safety Report 8096825-4 (Version None)
Quarter: 2012Q1

REPORT INFORMATION
  Report Type: 
  Country: None (occurrence: None)
  Receive Date: 20120129
  Receipt Date: 20111202
  Transmission Date: 20120608
  Serious: No
  Sender: FDA-Public Use
  Company Number: US-ABBOTT-11P-163-0880515-00

PATIENT
  Sex: Female

DRUGS (2)
  1. HUMIRA [Suspect]
     Indication: CROHN'S DISEASE
     Dosage: 4 PENS ON DAY 1, LOADING DOSE
     Route: 058
     Dates: start: 20110101
  2. HUMIRA [Suspect]
     Dosage: 2 PENS, LOADING DOSE
     Route: 058

REACTIONS (3)
  - ANAEMIA [None]
  - HEADACHE [None]
  - DIZZINESS [None]
